FAERS Safety Report 9016426 (Version 1)
Quarter: 2013Q1

REPORT INFORMATION
  Report Type: Spontaneous
  Country: MX (occurrence: MX)
  Receive Date: 20130116
  Receipt Date: 20130116
  Transmission Date: 20140127
  Serious: Yes (Death)
  Sender: FDA-Public Use
  Company Number: MX-GLAXOSMITHKLINE-A1008581A

PATIENT
  Age: 72 Year
  Sex: Female

DRUGS (2)
  1. SERETIDE [Suspect]
     Indication: PRODUCT USED FOR UNKNOWN INDICATION
     Route: 055
  2. UNKNOWN [Concomitant]

REACTIONS (1)
  - Pulmonary fibrosis [Fatal]
